FAERS Safety Report 8920081 (Version 4)
Quarter: 2013Q3

REPORT INFORMATION
  Report Type: Spontaneous
  Country: CO (occurrence: CO)
  Receive Date: 20121121
  Receipt Date: 20130726
  Transmission Date: 20140515
  Serious: Yes (Other)
  Sender: FDA-Public Use
  Company Number: CO-AMGEN-COLSP2012073822

PATIENT
  Age: 55 Year
  Sex: Female

DRUGS (11)
  1. ENBREL [Suspect]
     Indication: RHEUMATOID ARTHRITIS
     Dosage: 50 MG, WEEKLY
     Route: 058
     Dates: start: 2007
  2. ENBREL [Suspect]
     Dosage: UNK
     Route: 065
  3. METHOTREXATE /00113802/ [Suspect]
     Indication: RHEUMATOID ARTHRITIS
     Dosage: UNK
     Dates: start: 2008, end: 201207
  4. METHOTREXATE /00113802/ [Suspect]
     Dosage: UNK
     Dates: start: 201207, end: 201207
  5. LANSOPRAZOLE [Suspect]
     Indication: GASTRITIS
     Dosage: 15 MG BEFORE EACH MEAL
     Dates: start: 201205, end: 201205
  6. PREDNISOLON                        /00016201/ [Concomitant]
     Indication: RHEUMATOID ARTHRITIS
     Dosage: 5 MG, AS NEEDED
     Route: 048
     Dates: start: 2009
  7. PREDNISOLON                        /00016201/ [Concomitant]
     Indication: PAIN
     Dosage: UNK
  8. THYROXINE [Concomitant]
     Indication: HYPOTHYROIDISM
     Dosage: 1 TABLET AT 75MG FROM MONDAY TO FRIDAY AND 1 TABLET AT 50MG FROM SATUDAY TO SUNDAY BEFORE BREAKFAST
     Route: 048
     Dates: start: 1998
  9. SALAGEN [Concomitant]
     Indication: SJOGREN^S SYNDROME
     Dosage: 5 MG, 2X/DAY
     Route: 048
     Dates: start: 2002
  10. FOLIC ACID [Concomitant]
     Indication: PROPHYLAXIS
     Dosage: 1 MG, 1X/DAY
     Route: 048
     Dates: start: 2013
  11. METHOTREXATE [Concomitant]
     Indication: RHEUMATOID ARTHRITIS
     Dosage: 7.5 MG, UNK (WEEKLY ON SATURDAY)
     Route: 048
     Dates: start: 2011

REACTIONS (21)
  - Gastritis [Not Recovered/Not Resolved]
  - Reflux gastritis [Not Recovered/Not Resolved]
  - Bone loss [Not Recovered/Not Resolved]
  - Tooth loss [Not Recovered/Not Resolved]
  - Depression [Not Recovered/Not Resolved]
  - Eye disorder [Not Recovered/Not Resolved]
  - Chest discomfort [Not Recovered/Not Resolved]
  - Nausea [Unknown]
  - Vomiting [Not Recovered/Not Resolved]
  - Pain [Unknown]
  - Dry throat [Not Recovered/Not Resolved]
  - Skin burning sensation [Not Recovered/Not Resolved]
  - Weight decreased [Not Recovered/Not Resolved]
  - Fatigue [Not Recovered/Not Resolved]
  - Nervousness [Not Recovered/Not Resolved]
  - Lung disorder [Unknown]
  - Eating disorder [Unknown]
  - Crying [Not Recovered/Not Resolved]
  - Dysphonia [Not Recovered/Not Resolved]
  - Chest pain [Not Recovered/Not Resolved]
  - Injection site pain [Unknown]
